FAERS Safety Report 21503988 (Version 2)
Quarter: 2022Q4

REPORT INFORMATION
  Report Type: Spontaneous
  Country: US (occurrence: US)
  Receive Date: 20221025
  Receipt Date: 20221025
  Transmission Date: 20230113
  Serious: Yes (Other)
  Sender: FDA-Public Use
  Company Number: US-ALKERMES INC.-ALK-2022-005126

PATIENT
  Age: 21 Year
  Sex: Male

DRUGS (3)
  1. ARISTADA INITIO [Suspect]
     Active Substance: ARIPIPRAZOLE LAUROXIL
     Indication: Schizophrenia
     Dosage: 675 MILLIGRAM, ONE TIME DOSE
     Route: 030
     Dates: start: 202201, end: 202201
  2. ARISTADA [Suspect]
     Active Substance: ARIPIPRAZOLE LAUROXIL
     Indication: Schizophrenia
     Dosage: 882 MILLIGRAM
     Route: 030
     Dates: start: 20220210, end: 20220210
  3. ARISTADA [Suspect]
     Active Substance: ARIPIPRAZOLE LAUROXIL
     Dosage: 882 MILLIGRAM
     Route: 030
     Dates: start: 202201, end: 202201

REACTIONS (11)
  - Myocardial infarction [Unknown]
  - Obsessive-compulsive disorder [Unknown]
  - Tremor [Unknown]
  - Product administered at inappropriate site [Unknown]
  - Feeling hot [Unknown]
  - Anal incontinence [Unknown]
  - Mood swings [Unknown]
  - Chest discomfort [Unknown]
  - Tachycardia [Unknown]
  - Mobility decreased [Unknown]
  - Chest pain [Unknown]

NARRATIVE: CASE EVENT DATE: 20220101
